FAERS Safety Report 24995299 (Version 1)
Quarter: 2025Q1

REPORT INFORMATION
  Report Type: Report from Study
  Country: GB (occurrence: GB)
  Receive Date: 20250221
  Receipt Date: 20250221
  Transmission Date: 20250408
  Serious: Yes (Hospitalization)
  Sender: ROCHE
  Company Number: GB-ROCHE-10000205741

PATIENT
  Sex: Female

DRUGS (2)
  1. TOCILIZUMAB [Suspect]
     Active Substance: TOCILIZUMAB
     Indication: Rheumatoid arthritis
     Route: 058
     Dates: start: 20150101
  2. NAPROXEN [Concomitant]
     Active Substance: NAPROXEN

REACTIONS (5)
  - Vertigo [Unknown]
  - Skin disorder [Unknown]
  - Cellulitis [Unknown]
  - Malaise [Unknown]
  - Abscess [Unknown]
